FAERS Safety Report 23040999 (Version 1)
Quarter: 2023Q4

REPORT INFORMATION
  Report Type: Spontaneous
  Country: CA (occurrence: None)
  Receive Date: 20231006
  Receipt Date: 20231006
  Transmission Date: 20240110
  Serious: Yes (Hospitalization)
  Sender: FDA-Public Use
  Company Number: CA-ROCHE-3433596

PATIENT
  Age: 49 Year
  Sex: Female

DRUGS (6)
  1. RITUXIMAB [Suspect]
     Active Substance: RITUXIMAB
     Indication: Relapsing-remitting multiple sclerosis
     Route: 041
  2. RITUXIMAB [Suspect]
     Active Substance: RITUXIMAB
     Route: 041
  3. RITUXIMAB [Suspect]
     Active Substance: RITUXIMAB
     Route: 041
  4. ACETAMINOPHEN [Concomitant]
     Active Substance: ACETAMINOPHEN
     Route: 048
  5. DIPHENHYDRAMINE HYDROCHLORIDE [Concomitant]
     Active Substance: DIPHENHYDRAMINE HYDROCHLORIDE
     Route: 065
  6. METHYLPREDNISOLONE ACETATE [Concomitant]
     Active Substance: METHYLPREDNISOLONE ACETATE
     Route: 042

REACTIONS (13)
  - Arthralgia [Unknown]
  - COVID-19 [Unknown]
  - Grip strength decreased [Unknown]
  - Hypoaesthesia [Unknown]
  - Joint swelling [Unknown]
  - Malaise [Unknown]
  - Meningitis [Unknown]
  - Off label use [Unknown]
  - Pain [Unknown]
  - Pain in extremity [Unknown]
  - Productive cough [Unknown]
  - Pulmonary embolism [Unknown]
  - Urinary tract infection [Unknown]
